FAERS Safety Report 8832040 (Version 1)
Quarter: 2012Q4

REPORT INFORMATION
  Report Type: 
  Country: US (occurrence: US)
  Receive Date: 20121009
  Receipt Date: 20121009
  Transmission Date: 20130627
  Serious: No
  Sender: FDA-Public Use
  Company Number: US-PFIZER INC-2012247778

PATIENT
  Age: 67 Year
  Sex: Female
  Weight: 77.1 kg

DRUGS (11)
  1. ARTHROTEC [Suspect]
     Indication: OSTEOARTHRITIS
     Dosage: 1 DF, 2x/day
     Route: 048
     Dates: end: 201206
  2. ARTHROTEC [Suspect]
     Dosage: UNK, 2x/day
     Route: 048
     Dates: start: 201206, end: 20121002
  3. PLAQUENIL [Concomitant]
     Indication: ARTHRITIS
     Dosage: UNK
  4. NEURONTIN [Concomitant]
     Dosage: UNK
  5. NORVASC [Concomitant]
     Indication: BLOOD PRESSURE ABNORMAL
     Dosage: UNK
  6. ATENOLOL [Concomitant]
     Dosage: UNK
  7. LISINOPRIL [Concomitant]
     Dosage: UNK
  8. PROTONIX [Concomitant]
     Dosage: UNK
  9. AMITRIPTYLINE [Concomitant]
     Dosage: UNK
  10. CALCIUM [Concomitant]
     Dosage: UNK
  11. VITAMIN C [Concomitant]
     Dosage: UNK

REACTIONS (1)
  - Blood test abnormal [Unknown]
